FAERS Safety Report 15397071 (Version 1)
Quarter: 2018Q3

REPORT INFORMATION
  Report Type: Spontaneous
  Country: US (occurrence: US)
  Receive Date: 20180918
  Receipt Date: 20180918
  Transmission Date: 20181010
  Serious: No
  Sender: FDA-Public Use
  Company Number: US-TEVA-2018-US-953899

PATIENT
  Sex: Female

DRUGS (2)
  1. ALPRAZOLAM. [Suspect]
     Active Substance: ALPRAZOLAM
     Indication: PANIC ATTACK
  2. ALPRAZOLAM. [Suspect]
     Active Substance: ALPRAZOLAM
     Indication: ANXIETY
     Route: 065

REACTIONS (5)
  - Headache [Unknown]
  - Drug ineffective [Unknown]
  - Product taste abnormal [Unknown]
  - Fatigue [Unknown]
  - Product size issue [Unknown]

NARRATIVE: CASE EVENT DATE: 201808
